FAERS Safety Report 4904336-7 (Version None)
Quarter: 2006Q1

REPORT INFORMATION
  Report Type: 
  Country: None (occurrence: None)
  Receive Date: 20060208
  Receipt Date: 20050824
  Transmission Date: 20060701
  Serious: No
  Sender: FDA-Public Use
  Company Number: US-GLAXOSMITHKLINE-A0571642A

PATIENT
  Age: 8 Year
  Sex: Male
  Weight: 40 kg

DRUGS (2)
  1. PAXIL [Suspect]
     Dosage: 15MG PER DAY
     Route: 048
  2. RISPERDAL [Concomitant]
     Dosage: 1MG TWICE PER DAY
     Route: 048

REACTIONS (1)
  - BLOOD ZINC ABNORMAL [None]
